FAERS Safety Report 5524672-3 (Version None)
Quarter: 2007Q4

REPORT INFORMATION
  Report Type: 
  Country: None (occurrence: None)
  Receive Date: 20071123
  Receipt Date: 20071112
  Transmission Date: 20080405
  Serious: Yes (Hospitalization, Other)
  Sender: FDA-Public Use
  Company Number: US-ROCHE-521488

PATIENT
  Age: 41 Year
  Sex: Female

DRUGS (2)
  1. PEG-INTERFERON A-2A (RO 25-8310) [Suspect]
     Dosage: REPORTED AS PEGASYS, SUSPENDED SINCE 20 SEPTEMBER 2007
     Route: 065
     Dates: start: 20070622, end: 20070920
  2. RIBAVIRIN [Suspect]
     Dosage: SUSPENDED SINCE 20 SEPTEMBER 2007
     Route: 065
     Dates: start: 20070622, end: 20070920

REACTIONS (3)
  - DEHYDRATION [None]
  - GASTRIC HAEMORRHAGE [None]
  - SICKLE CELL ANAEMIA [None]
